FAERS Safety Report 14504521 (Version 1)
Quarter: 2018Q1

REPORT INFORMATION
  Report Type: Spontaneous
  Country: US (occurrence: US)
  Receive Date: 20180207
  Receipt Date: 20180207
  Transmission Date: 20180509
  Serious: No
  Sender: FDA-Public Use
  Company Number: None

PATIENT
  Age: 79 Year
  Sex: Female

DRUGS (1)
  1. IBRANCE [Suspect]
     Active Substance: PALBOCICLIB
     Dosage: 100MG QD FOR 21 DAYS ORAL
     Route: 048

REACTIONS (3)
  - Blood test abnormal [None]
  - Blood glucose fluctuation [None]
  - Alopecia [None]

NARRATIVE: CASE EVENT DATE: 20180207
